FAERS Safety Report 5705369-3 (Version None)
Quarter: 2008Q2

REPORT INFORMATION
  Report Type: 
  Country: None (occurrence: None)
  Receive Date: 20080415
  Receipt Date: 20080403
  Transmission Date: 20081010
  Serious: Yes (Disabling)
  Sender: FDA-Public Use
  Company Number: US-JNJFOC-20080401002

PATIENT
  Age: 46 Year

DRUGS (4)
  1. TOPIRAMATE [Suspect]
     Indication: EPILEPSY
     Route: 065
  2. LAMOTRIGINE [Suspect]
     Indication: EPILEPSY
     Route: 048
  3. GABAPENTIN [Suspect]
     Indication: EPILEPSY
     Route: 065
  4. ACETAMINOPHEN [Concomitant]
     Route: 065

REACTIONS (2)
  - MACULOPATHY [None]
  - VISUAL ACUITY REDUCED [None]
